FAERS Safety Report 4632761-0 (Version None)
Quarter: 2005Q2

REPORT INFORMATION
  Report Type: 
  Country: None (occurrence: None)
  Receive Date: 20050408
  Receipt Date: 20050408
  Transmission Date: 20051028
  Serious: Yes (Hospitalization)
  Sender: FDA-Public Use
  Company Number: None

PATIENT
  Age: 74 Year
  Sex: Female
  Weight: 60 kg

DRUGS (8)
  1. IMURAN [Suspect]
     Indication: SYSTEMIC LUPUS ERYTHEMATOSUS
     Dosage: ORAL
     Route: 048
  2. NORVASC [Concomitant]
  3. HYDROCHLOROTHIAZIDE [Concomitant]
  4. TYLENOL (CAPLET) [Concomitant]
  5. ARTHRITIS [Concomitant]
  6. GLUCOSAMINE [Concomitant]
  7. BIOTIN [Concomitant]
  8. MULTI-VITAMINS [Concomitant]

REACTIONS (17)
  - ABDOMINAL PAIN LOWER [None]
  - ASTHENIA [None]
  - BLOOD CREATINE PHOSPHOKINASE INCREASED [None]
  - BLOOD PRESSURE DECREASED [None]
  - BODY TEMPERATURE INCREASED [None]
  - DERMATOMYOSITIS [None]
  - DIARRHOEA [None]
  - GASTROENTERITIS VIRAL [None]
  - LIVER FUNCTION TEST ABNORMAL [None]
  - MYALGIA [None]
  - NAUSEA [None]
  - PAIN [None]
  - RENAL FAILURE ACUTE [None]
  - SEPSIS SYNDROME [None]
  - STUPOR [None]
  - TACHYCARDIA [None]
  - VOMITING [None]
